FAERS Safety Report 5264359-8 (Version None)
Quarter: 2007Q1

REPORT INFORMATION
  Report Type: 
  Country: None (occurrence: None)
  Receive Date: 20061213
  Receipt Date: 20050204
  Transmission Date: 20070707
  Serious: Yes (Other)
  Sender: FDA-Public Use
  Company Number: 2005UW02016

PATIENT
  Age: 69 Year
  Sex: Female
  Weight: 51.709 kg

DRUGS (3)
  1. IRESSA [Suspect]
     Indication: NON-SMALL CELL LUNG CANCER STAGE IV
     Dates: start: 20040501
  2. CELEBREX [Concomitant]
  3. ACTONEL [Concomitant]

REACTIONS (3)
  - CYSTITIS [None]
  - PARONYCHIA [None]
  - RASH GENERALISED [None]
